FAERS Safety Report 5601993-7 (Version None)
Quarter: 2008Q1

REPORT INFORMATION
  Report Type: 
  Country: None (occurrence: None)
  Receive Date: 20080122
  Receipt Date: 20080102
  Transmission Date: 20080703
  Serious: Yes (Other)
  Sender: FDA-Public Use
  Company Number: STI-2008-00016

PATIENT
  Age: 14 Year
  Sex: Female

DRUGS (3)
  1. 872A BREVOXYL-8 ACNE WASH KIT (BENZOYL PEROXIDE) (BENZOYL PEROXIDE) (8 [Suspect]
     Indication: ACNE
     Dosage: USED TWICE, TOPICAL
     Route: 061
     Dates: start: 20070101, end: 20080101
  2. FLONASE [Concomitant]
  3. ALLEGRA [Concomitant]

REACTIONS (3)
  - HYPERSENSITIVITY [None]
  - RASH [None]
  - URTICARIA [None]
